FAERS Safety Report 5125811-9 (Version None)
Quarter: 2006Q4

REPORT INFORMATION
  Report Type: 
  Country: None (occurrence: None)
  Receive Date: 20061012
  Receipt Date: 20061002
  Transmission Date: 20070319
  Serious: Yes (Hospitalization)
  Sender: FDA-Public Use
  Company Number: DEWYE087002OCT06

PATIENT
  Sex: Female
  Weight: 60 kg

DRUGS (4)
  1. ENBREL [Suspect]
     Indication: POLYARTHRITIS
     Dosage: UNKNOWN
     Route: 058
  2. DECORTIN [Concomitant]
     Route: 048
  3. DECORTIN [Concomitant]
     Dosage: 50 MG DAILY
     Route: 048
     Dates: start: 20060521
  4. DECORTIN [Concomitant]
     Route: 048

REACTIONS (4)
  - CONDITION AGGRAVATED [None]
  - LISTERIA SEPSIS [None]
  - LOSS OF CONSCIOUSNESS [None]
  - POLYARTHRITIS [None]
